FAERS Safety Report 4437168-7 (Version None)
Quarter: 2004Q3

REPORT INFORMATION
  Report Type: 
  Country: None (occurrence: None)
  Receive Date: 20040830
  Receipt Date: 20040407
  Transmission Date: 20050211
  Serious: Yes (Death, Other)
  Sender: FDA-Public Use
  Company Number: PHFR2004GB01699

PATIENT
  Age: 47 Year
  Sex: Male

DRUGS (1)
  1. CLOZARIL [Suspect]
     Indication: SCHIZOPHRENIA
     Dosage: 700MG/DAY
     Route: 048

REACTIONS (4)
  - EMPYEMA [None]
  - FAECALOMA [None]
  - INTESTINAL PERFORATION [None]
  - VOMITING [None]
